FAERS Safety Report 6185033-X (Version None)
Quarter: 2009Q2

REPORT INFORMATION
  Report Type: 
  Country: None (occurrence: None)
  Receive Date: 20090511
  Receipt Date: 20090501
  Transmission Date: 20091009
  Serious: Yes (Hospitalization, Other)
  Sender: FDA-Public Use
  Company Number: NZ-WYE-G03608909

PATIENT
  Age: 34 Year
  Sex: Male

DRUGS (1)
  1. ROBITUSSIN DX [Suspect]
     Dosage: 4 X 200ML OF THE PRODUCT PER WEEK
     Route: 048

REACTIONS (2)
  - BLOOD BROMIDE INCREASED [None]
  - DRUG ABUSE [None]
